FAERS Safety Report 10807618 (Version 1)
Quarter: 2015Q1

REPORT INFORMATION
  Report Type: Report from Study
  Country: US (occurrence: US)
  Receive Date: 20150217
  Receipt Date: 20150217
  Transmission Date: 20150721
  Serious: No
  Sender: FDA-Public Use
  Company Number: US-ABBVIE-14K-163-1248623-00

PATIENT
  Age: 38 Year
  Sex: Male

DRUGS (1)
  1. HUMIRA [Suspect]
     Active Substance: ADALIMUMAB
     Indication: PSORIATIC ARTHROPATHY
     Route: 058
     Dates: start: 20140529

REACTIONS (5)
  - Dizziness [Unknown]
  - Chills [Unknown]
  - Lethargy [Unknown]
  - Nausea [Unknown]
  - Influenza like illness [Unknown]

NARRATIVE: CASE EVENT DATE: 20140614
